FAERS Safety Report 12565971 (Version 2)
Quarter: 2016Q4

REPORT INFORMATION
  Report Type: Spontaneous
  Country: US (occurrence: US)
  Receive Date: 20160718
  Receipt Date: 20161012
  Transmission Date: 20170207
  Serious: No
  Sender: FDA-Public Use
  Company Number: US-ASTRAZENECA-2016SE68275

PATIENT
  Sex: Female

DRUGS (1)
  1. SYMBICORT [Suspect]
     Active Substance: BUDESONIDE\FORMOTEROL FUMARATE DIHYDRATE
     Dosage: 160 4.5 MCG, 2 PUFFS TWICE A DAY
     Route: 055
     Dates: start: 20160531

REACTIONS (3)
  - Dysgeusia [Unknown]
  - Product quality issue [Unknown]
  - Drug ineffective [Unknown]
